FAERS Safety Report 22325261 (Version 2)
Quarter: 2023Q2

REPORT INFORMATION
  Report Type: Other
  Country: DE (occurrence: None)
  Receive Date: 20230516
  Receipt Date: 20230629
  Transmission Date: 20230721
  Serious: Yes (Other)
  Sender: FDA-Public Use
  Company Number: DE-ROCHE-3348111

PATIENT
  Sex: Female

DRUGS (2)
  1. OCRELIZUMAB [Suspect]
     Active Substance: OCRELIZUMAB
     Indication: Relapsing multiple sclerosis
     Route: 042
     Dates: start: 20200429, end: 20200512
  2. OCRELIZUMAB [Suspect]
     Active Substance: OCRELIZUMAB
     Dosage: MOST RECENT DOSE PRIOR TO THE EVENT WAS GIVEN ON 29/AUG/2022.
     Route: 042
     Dates: start: 20201019

REACTIONS (3)
  - Arthritis reactive [Not Recovered/Not Resolved]
  - Chlamydial infection [Recovering/Resolving]
  - Infection [Unknown]
